FAERS Safety Report 12632831 (Version 2)
Quarter: 2016Q3

REPORT INFORMATION
  Report Type: Spontaneous
  Country: US (occurrence: US)
  Receive Date: 20160808
  Receipt Date: 20160808
  Transmission Date: 20161109
  Serious: No
  Sender: FDA-Public Use
  Company Number: US-BEH-2015057161

PATIENT
  Age: 51 Year
  Sex: Female
  Weight: 61 kg

DRUGS (14)
  1. EPIPEN [Concomitant]
     Active Substance: EPINEPHRINE
  2. LMX [Concomitant]
     Active Substance: LIDOCAINE
  3. BIOTIN [Concomitant]
     Active Substance: BIOTIN
  4. HIZENTRA [Suspect]
     Active Substance: HUMAN IMMUNOGLOBULIN G
     Indication: IMMUNODEFICIENCY COMMON VARIABLE
     Route: 058
  5. ARMOUR THYROID [Concomitant]
     Active Substance: THYROID, PORCINE
  6. ACETAMINOPHEN. [Concomitant]
     Active Substance: ACETAMINOPHEN
  7. MAGNESIUM [Concomitant]
     Active Substance: MAGNESIUM
  8. RANITIDIN [Concomitant]
     Active Substance: RANITIDINE HYDROCHLORIDE
  9. POTASSIUM CHLORIDE. [Concomitant]
     Active Substance: POTASSIUM CHLORIDE
  10. ATIVAN [Concomitant]
     Active Substance: LORAZEPAM
  11. ATENOLOL. [Concomitant]
     Active Substance: ATENOLOL
  12. CLARITIN [Concomitant]
     Active Substance: LORATADINE
  13. VITAMIN D3 [Concomitant]
     Active Substance: CHOLECALCIFEROL
  14. PROBIOTIC [Concomitant]
     Active Substance: PROBIOTICS NOS

REACTIONS (3)
  - Patient dissatisfaction with treatment [Unknown]
  - Cyst [Unknown]
  - Device issue [Unknown]

NARRATIVE: CASE EVENT DATE: 20151112
